FAERS Safety Report 12442792 (Version 4)
Quarter: 2017Q4

REPORT INFORMATION
  Report Type: Report from Study
  Country: BR (occurrence: BR)
  Receive Date: 20160607
  Receipt Date: 20171005
  Transmission Date: 20180320
  Serious: Yes (Other)
  Sender: FDA-Public Use
  Company Number: BR-JNJFOC-20160603357

PATIENT
  Sex: Female
  Weight: 60 kg

DRUGS (5)
  1. VITAMINE C [Concomitant]
     Active Substance: ASCORBIC ACID
     Route: 065
  2. METHOTREXATE. [Concomitant]
     Active Substance: METHOTREXATE
     Route: 065
  3. SIMPONI [Suspect]
     Active Substance: GOLIMUMAB
     Indication: RHEUMATOID ARTHRITIS
     Route: 058
     Dates: start: 20160220, end: 201701
  4. VITAMINE D [Concomitant]
     Route: 065
  5. SIMPONI [Suspect]
     Active Substance: GOLIMUMAB
     Indication: RHEUMATOID ARTHRITIS
     Route: 058
     Dates: start: 20160412

REACTIONS (6)
  - Infection [Unknown]
  - Vitamin D decreased [Unknown]
  - Weight decreased [Unknown]
  - Influenza [Recovering/Resolving]
  - Rheumatic disorder [Unknown]
  - Groin infection [Unknown]

NARRATIVE: CASE EVENT DATE: 2016
